FAERS Safety Report 24636319 (Version 1)
Quarter: 2024Q4

REPORT INFORMATION
  Report Type: Spontaneous
  Country: GB (occurrence: GB)
  Receive Date: 20241119
  Receipt Date: 20241119
  Transmission Date: 20250115
  Serious: Yes (Life-Threatening, Other)
  Sender: MERCK
  Company Number: None

PATIENT

DRUGS (2)
  1. SUGAMMADEX SODIUM [Suspect]
     Active Substance: SUGAMMADEX SODIUM
     Indication: Adverse drug reaction
     Dosage: 400 MG
  2. ONDANSETRON [Concomitant]
     Active Substance: ONDANSETRON
     Indication: Antiemetic supportive care
     Dosage: UNK
     Dates: start: 20241016

REACTIONS (1)
  - Bronchospasm [Recovered/Resolved]

NARRATIVE: CASE EVENT DATE: 20241016
